FAERS Safety Report 6993920-5 (Version None)
Quarter: 2010Q3

REPORT INFORMATION
  Report Type: 
  Country: None (occurrence: None)
  Receive Date: 20100917
  Receipt Date: 20070806
  Transmission Date: 20110219
  Serious: Yes (Hospitalization, Other)
  Sender: FDA-Public Use
  Company Number: US-ASTRAZENECA-2006UW26658

PATIENT
  Age: 22844 Day
  Sex: Female
  Weight: 82.1 kg

DRUGS (13)
  1. SEROQUEL [Suspect]
     Indication: DEPRESSION
     Route: 048
     Dates: start: 20030714, end: 20050101
  2. SEROQUEL [Suspect]
     Dosage: 25 TO 200 MG
     Route: 048
     Dates: start: 20030714, end: 20051114
  3. ZYPREXA [Suspect]
     Dosage: 5 TO 20 MG, FLUCTUATING
     Route: 048
     Dates: start: 20021105, end: 20041220
  4. OLANZAPINE [Concomitant]
     Dates: start: 20030303, end: 20041206
  5. FLUOXETINE [Concomitant]
  6. MODAFINIL [Concomitant]
  7. CLONAZEPAM [Concomitant]
  8. TRAZODONE HCL [Concomitant]
  9. LEXAPRO [Concomitant]
     Dates: start: 20030714
  10. LOTREL [Concomitant]
     Dosage: 5 TO 20 MG
     Route: 048
     Dates: start: 20021118
  11. DEMADEX [Concomitant]
     Route: 048
     Dates: start: 20021118
  12. ATIVAN [Concomitant]
     Dates: start: 20030813
  13. PROZAC [Concomitant]
     Indication: DEPRESSION
     Route: 048
     Dates: start: 20041221

REACTIONS (6)
  - DIABETES MELLITUS [None]
  - DIABETES MELLITUS INADEQUATE CONTROL [None]
  - DIABETES WITH HYPEROSMOLARITY [None]
  - KETOACIDOSIS [None]
  - PANCREATITIS [None]
  - TYPE 2 DIABETES MELLITUS [None]
